FAERS Safety Report 5713711-2 (Version None)
Quarter: 2008Q2

REPORT INFORMATION
  Report Type: 
  Country: None (occurrence: None)
  Receive Date: 20080418
  Receipt Date: 20080408
  Transmission Date: 20081010
  Serious: Yes (Death)
  Sender: FDA-Public Use
  Company Number: GXKR2008GB03437

PATIENT
  Age: 64 Year
  Sex: Male
  Weight: 104 kg

DRUGS (10)
  1. ACETYLSALICYLIC ACID SRT [Suspect]
     Indication: MYOCARDIAL ISCHAEMIA
     Dosage: ORAL
     Route: 048
  2. CLOPIDOGREL [Suspect]
     Indication: MYOCARDIAL ISCHAEMIA
     Dosage: 75 MG, ORAL
     Route: 048
  3. ATORVASTATIN CALCIUM [Concomitant]
  4. DILTIAZEM [Concomitant]
  5. GLYCERYL TRINITRATE       (GLYCERYL TRINITRATE) [Concomitant]
  6. METFORMIN HCL [Concomitant]
  7. NICORANDIL      (NICORANDIL) [Concomitant]
  8. OMEPRAZOLE [Concomitant]
  9. RAMIPRIL [Concomitant]
  10. TAMSULOSIN HCL [Concomitant]

REACTIONS (1)
  - PERICARDIAL HAEMORRHAGE [None]
